FAERS Safety Report 20178728 (Version 1)
Quarter: 2021Q4

REPORT INFORMATION
  Report Type: Spontaneous
  Country: US (occurrence: US)
  Receive Date: 20211214
  Receipt Date: 20211214
  Transmission Date: 20220303
  Serious: Yes (Other)
  Sender: FDA-Public Use
  Company Number: US-SUN PHARMACEUTICAL INDUSTRIES LTD-2021R1-319716

PATIENT
  Age: 51 Year
  Sex: Male

DRUGS (3)
  1. DEXMEDETOMIDINE [Suspect]
     Active Substance: DEXMEDETOMIDINE
     Indication: Sedative therapy
     Dosage: UNK (LOW-DOSE)
     Route: 065
  2. FENTANYL [Suspect]
     Active Substance: FENTANYL
     Indication: Sedative therapy
     Dosage: UNK
     Route: 065
  3. LIDOCAINE [Suspect]
     Active Substance: LIDOCAINE
     Indication: Sedative therapy
     Dosage: UNK
     Route: 065

REACTIONS (3)
  - Disinhibition [Unknown]
  - Air embolism [Unknown]
  - Drug ineffective [Unknown]
